FAERS Safety Report 6663603-X (Version None)
Quarter: 2010Q1

REPORT INFORMATION
  Report Type: 
  Country: None (occurrence: None)
  Receive Date: 20100331
  Receipt Date: 20100331
  Transmission Date: 20100710
  Serious: Yes (Life-Threatening, Hospitalization)
  Sender: FDA-Public Use
  Company Number: None

PATIENT
  Age: 10 Year
  Sex: Female
  Weight: 86 kg

DRUGS (2)
  1. IBUPROFEN [Suspect]
     Dosage: 400 MG 5-6 HOURS
  2. IBUPROFEN [Concomitant]

REACTIONS (14)
  - BLOOD POTASSIUM DECREASED [None]
  - BODY TEMPERATURE INCREASED [None]
  - DYSSTASIA [None]
  - GRIP STRENGTH DECREASED [None]
  - HAEMODYNAMIC INSTABILITY [None]
  - HYPOTENSION [None]
  - IDIOPATHIC THROMBOCYTOPENIC PURPURA [None]
  - INFLUENZA [None]
  - MOVEMENT DISORDER [None]
  - NEUTROPHIL COUNT DECREASED [None]
  - OEDEMA PERIPHERAL [None]
  - PLATELET COUNT DECREASED [None]
  - RASH ERYTHEMATOUS [None]
  - WHITE BLOOD CELL COUNT DECREASED [None]
